FAERS Safety Report 9173887 (Version 1)
Quarter: 2013Q1

REPORT INFORMATION
  Report Type: Spontaneous
  Country: GB (occurrence: None)
  Receive Date: 20130315
  Receipt Date: 20130315
  Transmission Date: 20140127
  Serious: Yes (Other)
  Sender: FDA-Public Use
  Company Number: 2013-03881

PATIENT
  Age: 24 Year
  Sex: Female

DRUGS (5)
  1. FLUOXETINE HYDROCHLORIDE (UNKNOWN) (FLUOXETINE HYDROCHLORIDE) UNK, UNKUNK [Suspect]
     Indication: DEPRESSION
     Dates: start: 200610, end: 200710
  2. INTERFERON ALFA 2B [Suspect]
     Indication: HEPATITIS C
     Dosage: TAKEN BY PATIENT^S PARTNER - DOSAGE UNKNOWN, OTHER
  3. SUBUTEX [Suspect]
     Indication: DRUG DEPENDENCE
     Route: 048
  4. RIBAVIRIN (RIBAVIRIN) [Suspect]
     Indication: PRODUCT USED FOR UNKNOWN INDICATION
  5. HEROIN (DIAMORPHINE) [Concomitant]

REACTIONS (5)
  - Abortion spontaneous [None]
  - Incorrect route of drug administration [None]
  - Maternal exposure during pregnancy [None]
  - Medication error [None]
  - Exposure via partner [None]
